FAERS Safety Report 14448461 (Version 1)
Quarter: 2018Q1

REPORT INFORMATION
  Report Type: Spontaneous
  Country: US (occurrence: US)
  Receive Date: 20180126
  Receipt Date: 20180126
  Transmission Date: 20180509
  Serious: No
  Sender: FDA-Public Use
  Company Number: None

PATIENT
  Age: 60 Year
  Sex: Female
  Weight: 67.5 kg

DRUGS (6)
  1. MELOXICAM. [Suspect]
     Active Substance: MELOXICAM
     Indication: ARTHRITIS
     Dosage: ?          QUANTITY:1 TABLET(S);?
     Route: 048
     Dates: start: 20180120, end: 20180123
  2. SIMVASTATIN. [Concomitant]
     Active Substance: SIMVASTATIN
  3. CENTRUM SILVER DAILY VITAMIN FOR WOMEN [Concomitant]
  4. TYLENOL [Concomitant]
     Active Substance: ACETAMINOPHEN
  5. CALCIUM WITH D [Concomitant]
     Active Substance: CALCIUM\VITAMIN D
  6. ALLERGY MEDS [Concomitant]

REACTIONS (2)
  - Renal pain [None]
  - Nausea [None]

NARRATIVE: CASE EVENT DATE: 20180120
